FAERS Safety Report 5530141-7 (Version None)
Quarter: 2007Q4

REPORT INFORMATION
  Report Type: 
  Country: None (occurrence: None)
  Receive Date: 20071130
  Receipt Date: 20071123
  Transmission Date: 20080405
  Serious: Yes (Hospitalization)
  Sender: FDA-Public Use
  Company Number: SE-BAXTER-2007BH009236

PATIENT
  Age: 75 Year
  Sex: Male

DRUGS (2)
  1. EXTRANEAL [Suspect]
     Indication: RENAL FAILURE CHRONIC
     Route: 033
     Dates: start: 20040101
  2. BALANCE PD SOLUTION [Concomitant]
     Indication: RENAL FAILURE CHRONIC
     Route: 033
     Dates: start: 20040101

REACTIONS (5)
  - ABDOMINAL PAIN [None]
  - ANOREXIA [None]
  - CHEST PAIN [None]
  - DEVICE INTERACTION [None]
  - HYPOGLYCAEMIA [None]
